FAERS Safety Report 5823003-9 (Version None)
Quarter: 2008Q3

REPORT INFORMATION
  Report Type: 
  Country: None (occurrence: None)
  Receive Date: 20080725
  Receipt Date: 20080718
  Transmission Date: 20090109
  Serious: Yes (Other)
  Sender: FDA-Public Use
  Company Number: B0529782A

PATIENT
  Age: 29 Year
  Sex: Female

DRUGS (2)
  1. SUMATRIPTAN SUCCINATE [Suspect]
     Indication: MIGRAINE
     Route: 048
  2. ERGOMETRINE MALEATE [Concomitant]
     Route: 065

REACTIONS (5)
  - ANGIOEDEMA [None]
  - CEREBROVASCULAR DISORDER [None]
  - CEREBROVASCULAR SPASM [None]
  - HEADACHE [None]
  - HYPERTENSION [None]
